FAERS Safety Report 14636226 (Version 1)
Quarter: 2018Q1

REPORT INFORMATION
  Report Type: Not Available
  Country: US (occurrence: US)
  Receive Date: 20180314
  Receipt Date: 20180314
  Transmission Date: 20180509
  Serious: Yes (Other)
  Sender: FDA-Public Use
  Company Number: US-FOUNDATIONCONSUMERHC-2018-US-001676

PATIENT
  Age: 38 Year
  Sex: Female
  Weight: 84.82 kg

DRUGS (3)
  1. UNSPECIFIED ^DIET PILL^ [Concomitant]
  2. TAKE ACTION [Suspect]
     Active Substance: LEVONORGESTREL
     Dosage: 1.5MG
     Route: 048
     Dates: start: 20180105, end: 20180105
  3. TAKE ACTION [Suspect]
     Active Substance: LEVONORGESTREL
     Dosage: 1.5MG
     Route: 048
     Dates: start: 20180105, end: 20180105

REACTIONS (3)
  - Intentional product misuse [Recovered/Resolved]
  - Drug ineffective [Unknown]
  - Pregnancy after post coital contraception [Unknown]

NARRATIVE: CASE EVENT DATE: 201801
